FAERS Safety Report 22831454 (Version 5)
Quarter: 2023Q4

REPORT INFORMATION
  Report Type: Report from Study
  Country: CA (occurrence: CA)
  Receive Date: 20230817
  Receipt Date: 20231109
  Transmission Date: 20240110
  Serious: Yes (Other)
  Sender: FDA-Public Use
  Company Number: CA-UCBSA-2022068557

PATIENT
  Sex: Female

DRUGS (5)
  1. CERTOLIZUMAB PEGOL [Suspect]
     Active Substance: CERTOLIZUMAB PEGOL
     Indication: Rheumatoid arthritis
     Dosage: 400 MILLIGRAM, EV 2 WEEKS(QOW)
     Route: 058
     Dates: start: 20190308
  2. CERTOLIZUMAB PEGOL [Suspect]
     Active Substance: CERTOLIZUMAB PEGOL
     Dosage: 400 MILLIGRAM, EV 4 WEEKS
     Route: 058
  3. CERTOLIZUMAB PEGOL [Suspect]
     Active Substance: CERTOLIZUMAB PEGOL
     Dosage: 200 MILLIGRAM, EV 2 WEEKS(QOW)
     Route: 058
  4. CERTOLIZUMAB PEGOL [Suspect]
     Active Substance: CERTOLIZUMAB PEGOL
     Dosage: 200 MILLIGRAM, EV 2 WEEKS(QOW)
     Route: 058
  5. AMOXICILLIN [Concomitant]
     Active Substance: AMOXICILLIN
     Indication: Pharyngitis
     Dosage: UNK

REACTIONS (7)
  - Rheumatoid arthritis [Not Recovered/Not Resolved]
  - Pharyngitis [Unknown]
  - Injection site pain [Recovered/Resolved]
  - COVID-19 [Recovered/Resolved]
  - Antibiotic therapy [Unknown]
  - Injection site discomfort [Recovered/Resolved]
  - Depressed mood [Recovering/Resolving]

NARRATIVE: CASE EVENT DATE: 20220101
